FAERS Safety Report 16409422 (Version 2)
Quarter: 2019Q3

REPORT INFORMATION
  Report Type: Spontaneous
  Country: US (occurrence: US)
  Receive Date: 20190610
  Receipt Date: 20190702
  Transmission Date: 20191004
  Serious: No
  Sender: FDA-Public Use
  Company Number: US-PFIZER INC-2019246765

PATIENT
  Age: 66 Year
  Sex: Female

DRUGS (1)
  1. LATANOPROST. [Suspect]
     Active Substance: LATANOPROST
     Indication: GLAUCOMA
     Dosage: 1 DROP EACH ON BOTH EYES AT BEDTIME
     Route: 047
     Dates: end: 20180417

REACTIONS (2)
  - Hypersensitivity [Recovered/Resolved]
  - Drug ineffective [Unknown]
